FAERS Safety Report 4270472-4 (Version None)
Quarter: 2004Q1

REPORT INFORMATION
  Report Type: 
  Country: None (occurrence: None)
  Receive Date: 20040113
  Receipt Date: 20040113
  Transmission Date: 20041129
  Serious: Yes (Death, Life-Threatening, Hospitalization)
  Sender: FDA-Public Use
  Company Number: None

PATIENT
  Sex: Male
  Weight: 86.7 kg

DRUGS (17)
  1. PHENAZOPYRIDINE HCL TAB [Suspect]
     Indication: URINARY TRACT INFECTION
     Dosage: 200 MG Q6 H PRN ORAL
     Route: 048
     Dates: start: 20030821, end: 20031125
  2. LEVOFLOXACIN [Concomitant]
  3. OXYCODONE HCL [Concomitant]
  4. ROXICET [Concomitant]
  5. BISACODYL [Concomitant]
  6. CLOPIDOGREL BISULFATE [Concomitant]
  7. DIAZEPAM [Concomitant]
  8. DOCUSATE CA [Concomitant]
  9. DRESSING, XEROFORM [Concomitant]
  10. FUROSEMIDE [Concomitant]
  11. HYDROCHLOROTHIAZIDE [Concomitant]
  12. LISINOPRIL [Concomitant]
  13. LORATADINE [Concomitant]
  14. PHENAZOYPRIDINE [Concomitant]
  15. POTASSIUM CHLORIDE [Concomitant]
  16. OXYCODONE HCL [Concomitant]
  17. OXYCODONE HCL [Concomitant]

REACTIONS (4)
  - ACQUIRED METHAEMOGLOBINAEMIA [None]
  - LACTIC ACIDOSIS [None]
  - SEPSIS [None]
  - UROSEPSIS [None]
